FAERS Safety Report 6560530-3 (Version None)
Quarter: 2010Q1

REPORT INFORMATION
  Report Type: 
  Country: None (occurrence: None)
  Receive Date: 20100129
  Receipt Date: 20090922
  Transmission Date: 20100710
  Serious: Yes (Hospitalization)
  Sender: FDA-Public Use
  Company Number: US-ABBOTT-09P-163-0598631-00

PATIENT
  Sex: Female
  Weight: 59.02 kg

DRUGS (4)
  1. HUMIRA [Suspect]
     Indication: PSORIATIC ARTHROPATHY
     Route: 058
     Dates: start: 20090801, end: 20090918
  2. PREDNISONE [Concomitant]
     Indication: PSORIATIC ARTHROPATHY
     Route: 048
  3. ASACOL [Concomitant]
     Indication: CROHN'S DISEASE
     Route: 048
  4. NEURONTIN [Concomitant]
     Indication: MUSCLE INJURY
     Route: 048

REACTIONS (4)
  - FURUNCLE [None]
  - PAIN [None]
  - RECTAL ABSCESS [None]
  - SECRETION DISCHARGE [None]
